FAERS Safety Report 6918854-3 (Version None)
Quarter: 2010Q3

REPORT INFORMATION
  Report Type: 
  Country: None (occurrence: None)
  Receive Date: 20100811
  Receipt Date: 20100208
  Transmission Date: 20110219
  Serious: No
  Sender: FDA-Public Use
  Company Number: US-TYCO HEALTHCARE/MALLINCKRODT-T201000601

PATIENT

DRUGS (3)
  1. ACETAMINOPHEN AND HYDROCODONE BITARTRATE [Suspect]
     Indication: INTERVERTEBRAL DISC PROTRUSION
     Dosage: 2 EVERY 4 HOURS
     Route: 048
     Dates: start: 20100129
  2. GABAPENTIN [Concomitant]
     Indication: NEURALGIA
     Dosage: 300 MG, TID
     Route: 048
     Dates: start: 20100125
  3. AMBIEN [Concomitant]
     Indication: INSOMNIA
     Dosage: 1/4 TAB, PRN
     Dates: start: 20090301

REACTIONS (2)
  - DRUG INEFFECTIVE [None]
  - INTENTIONAL DRUG MISUSE [None]
